FAERS Safety Report 9066560 (Version 1)
Quarter: 2013Q1

REPORT INFORMATION
  Report Type: Spontaneous
  Country: US (occurrence: US)
  Receive Date: 20130131
  Receipt Date: 20130131
  Transmission Date: 20140127
  Serious: No
  Sender: FDA-Public Use
  Company Number: US-ABBOTT-12P-163-1016760-00

PATIENT
  Age: 43 Year
  Sex: Male

DRUGS (3)
  1. HUMIRA [Suspect]
     Indication: CROHN^S DISEASE
     Dates: start: 20110604
  2. SLEEPING MEDICINE [Concomitant]
     Indication: PRODUCT USED FOR UNKNOWN INDICATION
     Dosage: DOESN^T TAKE OFTEN
  3. VALIUM [Concomitant]
     Indication: ANXIETY
     Dosage: AS NEEDED WHEN FLYING
     Dates: start: 201205

REACTIONS (1)
  - Injection site pain [Recovered/Resolved]
